FAERS Safety Report 6678580-5 (Version None)
Quarter: 2010Q2

REPORT INFORMATION
  Report Type: 
  Country: None (occurrence: None)
  Receive Date: 20100408
  Receipt Date: 20100329
  Transmission Date: 20101027
  Serious: Yes (Hospitalization)
  Sender: FDA-Public Use
  Company Number: 552475

PATIENT
  Age: 14 Year
  Sex: Male

DRUGS (6)
  1. CARBOPLATIN [Suspect]
     Indication: MEDULLOBLASTOMA
     Dosage: 560 MG/M2
  2. VINCRISTINE SULFATE [Suspect]
     Indication: MEDULLOBLASTOMA
     Dosage: 1.5 MG/M2
  3. CYCLOPHOSPHAMIDE [Suspect]
     Indication: MEDULLOBLASTOMA
     Dosage: 1000 MG/M2
  4. (THERAPEUTIC RADIOPHARMACEUTICALS) [Suspect]
     Indication: MEDULLOBLASTOMA
  5. (MESNA) [Concomitant]
  6. (GRANULOCYTE COLONY STIMULATING FACTOR) [Concomitant]

REACTIONS (15)
  - ASCITES [None]
  - CONTUSION [None]
  - DEAFNESS [None]
  - DIARRHOEA [None]
  - DISSEMINATED INTRAVASCULAR COAGULATION [None]
  - DRUG TOXICITY [None]
  - FEBRILE NEUTROPENIA [None]
  - GINGIVAL BLEEDING [None]
  - HEPATOMEGALY [None]
  - LUNG INFILTRATION [None]
  - RESPIRATORY DISTRESS [None]
  - SEPSIS [None]
  - STOMATITIS [None]
  - VENOOCCLUSIVE LIVER DISEASE [None]
  - WEIGHT INCREASED [None]
